FAERS Safety Report 12877950 (Version 3)
Quarter: 2017Q1

REPORT INFORMATION
  Report Type: Spontaneous
  Country: US (occurrence: US)
  Receive Date: 20161024
  Receipt Date: 20170324
  Transmission Date: 20170428
  Serious: No
  Sender: FDA-Public Use
  Company Number: US-TEVA-706554USA

PATIENT
  Age: 4 Year

DRUGS (1)
  1. COPAXONE [Suspect]
     Active Substance: GLATIRAMER ACETATE
     Indication: MULTIPLE SCLEROSIS
     Route: 058
     Dates: start: 20160830

REACTIONS (5)
  - Dyspnoea [Unknown]
  - Drug administered to patient of inappropriate age [Unknown]
  - Anxiety [Unknown]
  - Flushing [Unknown]
  - Injection site erythema [Unknown]

NARRATIVE: CASE EVENT DATE: 201608
